FAERS Safety Report 11951264 (Version 2)
Quarter: 2016Q1

REPORT INFORMATION
  Report Type: Report from Study
  Country: CA (occurrence: CA)
  Receive Date: 20160126
  Receipt Date: 20160307
  Transmission Date: 20160526
  Serious: Yes (Other)
  Sender: FDA-Public Use
  Company Number: CA-JNJFOC-20160116970

PATIENT
  Sex: Female

DRUGS (1)
  1. REMICADE [Suspect]
     Active Substance: INFLIXIMAB
     Indication: CROHN^S DISEASE
     Dosage: THE  THERAPY DURATION WAS 120 MIN
     Route: 042
     Dates: end: 20160125

REACTIONS (3)
  - Oesophageal carcinoma [Unknown]
  - Skin haemorrhage [Unknown]
  - Skin fissures [Unknown]
